FAERS Safety Report 9609482 (Version 1)
Quarter: 2013Q4

REPORT INFORMATION
  Report Type: Spontaneous
  Country: US (occurrence: None)
  Receive Date: 20131007
  Receipt Date: 20131007
  Transmission Date: 20140711
  Serious: Yes (Hospitalization)
  Sender: FDA-Public Use
  Company Number: 20130065

PATIENT
  Age: 65 Year
  Sex: Female

DRUGS (3)
  1. SUBSYS(FENTANYL SUBLINGUAL SPRAY) 400MCG, INSYS THERAPEUTICS [Suspect]
     Indication: CANCER PAIN
     Dosage: 400 MCG SL QID.(SPRAY)
     Dates: start: 20130813
  2. ER MORPHINE [Concomitant]
  3. TOPOMAX [Concomitant]

REACTIONS (1)
  - Investigation [None]
